FAERS Safety Report 9432407 (Version 1)
Quarter: 2013Q3

REPORT INFORMATION
  Report Type: Spontaneous
  Country: US (occurrence: US)
  Receive Date: 20130731
  Receipt Date: 20130731
  Transmission Date: 20140515
  Serious: Yes (Hospitalization)
  Sender: FDA-Public Use
  Company Number: US-009507513-2011SP030602

PATIENT
  Age: 31 Year
  Sex: Female
  Weight: 68.4 kg

DRUGS (2)
  1. NUVARING [Suspect]
     Indication: CONTRACEPTION
     Dosage: UNK UNK, QM
     Dates: start: 20080326, end: 20090730
  2. NUVARING [Suspect]
     Dates: start: 20090225

REACTIONS (6)
  - Intracranial aneurysm [Unknown]
  - Arachnoid cyst [Unknown]
  - Intracranial venous sinus thrombosis [Recovered/Resolved]
  - Deep vein thrombosis [Unknown]
  - Tooth infection [Unknown]
  - Hypothyroidism [Unknown]
